FAERS Safety Report 9780157 (Version 1)
Quarter: 2013Q4

REPORT INFORMATION
  Report Type: Spontaneous
  Country: US (occurrence: US)
  Receive Date: 20131223
  Receipt Date: 20131223
  Transmission Date: 20140711
  Serious: Yes (Death)
  Sender: FDA-Public Use
  Company Number: US-ENDO PHARMACEUTICALS INC.-SPLN20130109

PATIENT
  Age: 10 Year
  Sex: Female

DRUGS (4)
  1. SUPPRELIN LA [Suspect]
     Indication: PRODUCT USED FOR UNKNOWN INDICATION
     Route: 058
     Dates: start: 20120724
  2. SUPPRELIN LA [Suspect]
     Route: 058
     Dates: start: 201003
  3. SUPPRELIN LA [Suspect]
     Route: 058
     Dates: start: 201003
  4. SUPPRELIN LA [Suspect]
     Route: 058
     Dates: start: 200809, end: 2010

REACTIONS (1)
  - Astrocytoma, low grade [Fatal]
